FAERS Safety Report 9767564 (Version 2)
Quarter: 2013Q4

REPORT INFORMATION
  Report Type: Spontaneous
  Country: US (occurrence: US)
  Receive Date: 20131217
  Receipt Date: 20131217
  Transmission Date: 20140711
  Serious: No
  Sender: FDA-Public Use
  Company Number: US-GILEAD-2009-0024342

PATIENT
  Age: 55 Year
  Sex: Female
  Weight: 56.47 kg

DRUGS (4)
  1. VIREAD [Suspect]
     Indication: HEPATITIS B
     Dates: start: 20090622
  2. HEPSERA [Concomitant]
     Dates: start: 20061030, end: 20090622
  3. OMEPRAZOLE [Concomitant]
     Dates: start: 20080922
  4. MULTIVITAMINS [Concomitant]

REACTIONS (5)
  - Arthralgia [Recovered/Resolved]
  - Weight decreased [Recovered/Resolved]
  - Insomnia [Recovered/Resolved]
  - Myalgia [Recovered/Resolved]
  - Fatigue [Recovered/Resolved]
